FAERS Safety Report 13860787 (Version 1)
Quarter: 2017Q3

REPORT INFORMATION
  Report Type: Spontaneous
  Country: US (occurrence: US)
  Receive Date: 20170811
  Receipt Date: 20170811
  Transmission Date: 20171127
  Serious: Yes (Other)
  Sender: FDA-Public Use
  Company Number: US-ELI_LILLY_AND_COMPANY-US201708003694

PATIENT
  Age: 31 Year
  Sex: Female
  Weight: 83.25 kg

DRUGS (1)
  1. TRULICITY [Suspect]
     Active Substance: DULAGLUTIDE
     Indication: DIABETES MELLITUS INADEQUATE CONTROL
     Dosage: 1.5 MG, WEEKLY (1/W)
     Route: 058
     Dates: start: 20170302, end: 20170309

REACTIONS (3)
  - Anxiety [Recovered/Resolved]
  - Delusion [Recovered/Resolved]
  - Paranoia [Recovered/Resolved]

NARRATIVE: CASE EVENT DATE: 20170304
